FAERS Safety Report 20841602 (Version 2)
Quarter: 2023Q2

REPORT INFORMATION
  Report Type: Spontaneous
  Country: ES (occurrence: ES)
  Receive Date: 20220518
  Receipt Date: 20230630
  Transmission Date: 20230721
  Serious: Yes (Hospitalization)
  Sender: FDA-Public Use
  Company Number: ES-SUN PHARMACEUTICAL INDUSTRIES LTD-2022RR-336825

PATIENT
  Age: 29 Year
  Sex: Male
  Weight: 82 kg

DRUGS (1)
  1. OLANZAPINE [Suspect]
     Active Substance: OLANZAPINE
     Indication: Product used for unknown indication
     Dosage: MEDICATION OVERINTAKE
     Route: 048
     Dates: start: 20200221, end: 20200222

REACTIONS (3)
  - Altered state of consciousness [Recovered/Resolved]
  - Rhabdomyolysis [Recovered/Resolved]
  - Suicide attempt [Unknown]

NARRATIVE: CASE EVENT DATE: 20200222
